FAERS Safety Report 14125948 (Version 1)
Quarter: 2017Q4

REPORT INFORMATION
  Report Type: Spontaneous
  Country: US (occurrence: US)
  Receive Date: 20171025
  Receipt Date: 20171025
  Transmission Date: 20180321
  Serious: Yes (Other)
  Sender: FDA-Public Use
  Company Number: US-BAUSCH-BL-2017-029804

PATIENT
  Sex: Female

DRUGS (2)
  1. UCERIS [Suspect]
     Active Substance: BUDESONIDE
     Indication: CROHN^S DISEASE
     Dosage: 8 WEEK COURSE OF UCERIS
     Route: 065
     Dates: start: 20170806, end: 20171001
  2. UCERIS [Suspect]
     Active Substance: BUDESONIDE
     Indication: COLITIS

REACTIONS (4)
  - Colitis [Not Recovered/Not Resolved]
  - Off label use [Recovered/Resolved]
  - Cushingoid [Not Recovered/Not Resolved]
  - Crohn^s disease [Not Recovered/Not Resolved]

NARRATIVE: CASE EVENT DATE: 20170806
